FAERS Safety Report 5025937-4 (Version None)
Quarter: 2006Q2

REPORT INFORMATION
  Report Type: 
  Country: None (occurrence: None)
  Receive Date: 20060614
  Receipt Date: 20060608
  Transmission Date: 20061013
  Serious: Yes (Death, Other)
  Sender: FDA-Public Use
  Company Number: DE-GLAXOSMITHKLINE-B0427136A

PATIENT
  Sex: Female

DRUGS (4)
  1. BUSULFAN [Suspect]
     Dosage: 3.3MGK UNKNOWN
     Route: 042
  2. FLUDARABINE [Suspect]
     Dosage: 30MGM2 PER DAY
     Route: 042
  3. POLYCHEMOTHERAPY [Concomitant]
     Route: 042
  4. CYCLOSPORINE [Concomitant]
     Route: 065

REACTIONS (5)
  - GRAFT VERSUS HOST DISEASE [None]
  - GRAFT VERSUS HOST DISEASE IN SKIN [None]
  - MUCOSAL INFLAMMATION [None]
  - PNEUMONIA ASPERGILLUS [None]
  - THROMBOTIC THROMBOCYTOPENIC PURPURA [None]
